FAERS Safety Report 17024169 (Version 1)
Quarter: 2019Q4

REPORT INFORMATION
  Report Type: Spontaneous
  Country: US (occurrence: US)
  Receive Date: 20191113
  Receipt Date: 20191113
  Transmission Date: 20200122
  Serious: No
  Sender: FDA-Public Use
  Company Number: US-SUN PHARMACEUTICAL INDUSTRIES LTD-2018R1-199471

PATIENT
  Sex: Female

DRUGS (1)
  1. PSEUDOEPHEDRINE. [Suspect]
     Active Substance: PSEUDOEPHEDRINE HYDROCHLORIDE
     Indication: NASAL CONGESTION
     Dosage: UNK (AS DIRECTED)
     Route: 065

REACTIONS (3)
  - Product quality issue [Unknown]
  - Extra dose administered [Unknown]
  - Drug ineffective [Unknown]
